FAERS Safety Report 8449216-8 (Version None)
Quarter: 2012Q2

REPORT INFORMATION
  Report Type: 
  Country: None (occurrence: None)
  Receive Date: 20120619
  Receipt Date: 20120604
  Transmission Date: 20120825
  Serious: Yes (Death, Other)
  Sender: FDA-Public Use
  Company Number: DE-WATSON-2012-10098

PATIENT
  Age: 67 Year
  Sex: Male

DRUGS (2)
  1. PREDNISOLONE [Suspect]
     Indication: ORGAN TRANSPLANT
     Dosage: 5 MG, DAILY
     Route: 065
  2. CYCLOSPORINE [Suspect]
     Indication: ORGAN TRANSPLANT
     Dosage: 200 MG, DAILY
     Route: 065

REACTIONS (2)
  - PLASMABLASTIC LYMPHOMA [None]
  - LYMPHOPROLIFERATIVE DISORDER [None]
